FAERS Safety Report 19455070 (Version 5)
Quarter: 2021Q3

REPORT INFORMATION
  Report Type: Report from Study
  Country: US (occurrence: US)
  Receive Date: 20210623
  Receipt Date: 20210810
  Transmission Date: 20211014
  Serious: Yes (Hospitalization)
  Sender: FDA-Public Use
  Company Number: US-PFIZER INC-2021542304

PATIENT
  Age: 45 Year
  Sex: Female
  Weight: 88.5 kg

DRUGS (6)
  1. PALBOCICLIB [Suspect]
     Active Substance: PALBOCICLIB
     Indication: HORMONE RECEPTOR POSITIVE HER2 NEGATIVE BREAST CANCER
     Dosage: 125 MILLIGRAM, QD
     Route: 048
     Dates: start: 20210331, end: 20210428
  2. KP?868. [Suspect]
     Active Substance: KP-868
     Dosage: 50 MILLIGRAM, QD
     Dates: start: 20210331
  3. KP?868. [Suspect]
     Active Substance: KP-868
     Dosage: 50 MILLIGRAM, QD
     Dates: start: 20210331
  4. PALBOCICLIB [Suspect]
     Active Substance: PALBOCICLIB
     Dosage: 100 MILLIGRAM, QD
     Route: 048
     Dates: start: 20210512
  5. KP?868. [Suspect]
     Active Substance: KP-868
     Dosage: 50 MILLIGRAM, QD
     Dates: start: 20210331
  6. KP?868. [Suspect]
     Active Substance: KP-868
     Indication: HORMONE RECEPTOR POSITIVE HER2 NEGATIVE BREAST CANCER
     Dosage: 50 MILLIGRAM, QD
     Route: 048
     Dates: start: 20210331

REACTIONS (1)
  - Embolism [Recovered/Resolved]

NARRATIVE: CASE EVENT DATE: 20210423
